FAERS Safety Report 18476257 (Version 2)
Quarter: 2020Q4

REPORT INFORMATION
  Report Type: Spontaneous
  Country: IT (occurrence: IT)
  Receive Date: 20201106
  Receipt Date: 20201120
  Transmission Date: 20210114
  Serious: Yes (Hospitalization, Other)
  Sender: FDA-Public Use
  Company Number: IT-009507513-2010ITA009916

PATIENT
  Age: 9 Year
  Sex: Male

DRUGS (2)
  1. PREVYMIS [Suspect]
     Active Substance: LETERMOVIR
     Dosage: 28 TABLETS, 240 MG
     Dates: start: 20200522, end: 20201001
  2. PREVYMIS [Suspect]
     Active Substance: LETERMOVIR
     Dosage: 28 TABLETS, 240 MG
     Dates: start: 20200522, end: 20201001

REACTIONS (3)
  - Adenovirus reactivation [Not Recovered/Not Resolved]
  - Product use issue [Unknown]
  - Micrococcus infection [Not Recovered/Not Resolved]

NARRATIVE: CASE EVENT DATE: 2020
